FAERS Safety Report 6231198-0 (Version None)
Quarter: 2009Q2

REPORT INFORMATION
  Report Type: 
  Country: None (occurrence: None)
  Receive Date: 20090616
  Receipt Date: 20090609
  Transmission Date: 20091009
  Serious: Yes (Life-Threatening, Disabling)
  Sender: FDA-Public Use
  Company Number: GB-NAPPMUNDI-GBR-2009-0005218

PATIENT
  Age: 62 Year
  Sex: Male
  Weight: 88 kg

DRUGS (5)
  1. OXYCODONE HYDROCHLORIDE [Suspect]
     Indication: SPINAL COMPRESSION FRACTURE
     Dosage: 160 MG, BID
     Route: 048
     Dates: start: 20081229
  2. AMITRIPTLINE HYDROCHLORIDE TAB [Concomitant]
     Indication: ANXIETY
     Dosage: 150 MG, UNK
     Route: 048
     Dates: start: 19950101
  3. ASPIRIN [Concomitant]
     Indication: DRUG USE FOR UNKNOWN INDICATION
     Dosage: 75 MG, UNK
     Route: 048
     Dates: start: 20040101
  4. BENDROFLUMETHIAZIDE [Concomitant]
     Indication: HYPERTENSION
     Dosage: 2.5 MG, UNK
     Route: 048
     Dates: start: 20040101
  5. RISEDRONATE SODIUM [Suspect]
     Indication: OSTEOPOROSIS
     Dosage: 35 MG, UNK
     Route: 048
     Dates: start: 20040101

REACTIONS (1)
  - COLITIS ISCHAEMIC [None]
